FAERS Safety Report 8983805 (Version 1)
Quarter: 2012Q4

REPORT INFORMATION
  Report Type: Report from Study
  Country: US (occurrence: US)
  Receive Date: 20121224
  Receipt Date: 20121224
  Transmission Date: 20130627
  Serious: Yes (Hospitalization)
  Sender: FDA-Public Use
  Company Number: US-ROCHE-1171130

PATIENT
  Sex: Male

DRUGS (1)
  1. CAPECITABINE [Suspect]
     Indication: COLON CANCER
     Route: 048
     Dates: start: 20120705, end: 20120813

REACTIONS (5)
  - Procedural pain [Unknown]
  - Nausea [Unknown]
  - Amnesia [Not Recovered/Not Resolved]
  - Personality change [Not Recovered/Not Resolved]
  - Abnormal behaviour [Not Recovered/Not Resolved]
